FAERS Safety Report 13691913 (Version 1)
Quarter: 2017Q2

REPORT INFORMATION
  Report Type: Spontaneous
  Country: US (occurrence: US)
  Receive Date: 20170626
  Receipt Date: 20170626
  Transmission Date: 20170830
  Serious: Yes (Other)
  Sender: FDA-Public Use
  Company Number: US-BRACCO-014255

PATIENT
  Age: 68 Year
  Sex: Male
  Weight: 87 kg

DRUGS (6)
  1. BACITRACIN. [Concomitant]
     Active Substance: BACITRACIN
  2. SIMVASTATIN. [Concomitant]
     Active Substance: SIMVASTATIN
  3. CHOLECALCIFEROL [Concomitant]
     Active Substance: CHOLECALCIFEROL
  4. MULTIHANCE [Suspect]
     Active Substance: GADOBENATE DIMEGLUMINE
     Indication: NUCLEAR MAGNETIC RESONANCE IMAGING BRAIN
     Route: 042
     Dates: start: 20161110, end: 20161110
  5. ACYCLOVIR. [Concomitant]
     Active Substance: ACYCLOVIR
  6. TAMOXIFEN [Concomitant]
     Active Substance: TAMOXIFEN

REACTIONS (1)
  - Anaphylactic reaction [Recovering/Resolving]

NARRATIVE: CASE EVENT DATE: 20161110
